FAERS Safety Report 10628837 (Version 1)
Quarter: 2014Q4

REPORT INFORMATION
  Report Type: Spontaneous
  Country: US (occurrence: US)
  Receive Date: 20141205
  Receipt Date: 20141205
  Transmission Date: 20150529
  Serious: No
  Sender: FDA-Public Use
  Company Number: US-BRISTOL-MYERS SQUIBB COMPANY-21498720

PATIENT
  Age: 78 Year
  Sex: Female
  Weight: 73.01 kg

DRUGS (15)
  1. NOVOLOG [Concomitant]
     Active Substance: INSULIN ASPART
  2. NITROQUICK [Concomitant]
     Active Substance: NITROGLYCERIN
  3. DILTIAZEM HCL [Concomitant]
     Active Substance: DILTIAZEM HYDROCHLORIDE
  4. SIMVASTATIN. [Concomitant]
     Active Substance: SIMVASTATIN
  5. FISH OIL [Concomitant]
     Active Substance: FISH OIL
  6. FUROSEMIDE. [Concomitant]
     Active Substance: FUROSEMIDE
  7. METOPROLOL [Concomitant]
     Active Substance: METOPROLOL
  8. MIRALAX [Concomitant]
     Active Substance: POLYETHYLENE GLYCOL 3350
  9. WARFARIN SODIUM. [Suspect]
     Active Substance: WARFARIN SODIUM
     Dosage: 1 DF= 5MG2/WEEK AND 2.5MG1/DAY
  10. ISOSORBIDE [Concomitant]
     Active Substance: ISOSORBIDE
  11. VITAMIN D3 [Concomitant]
     Active Substance: CHOLECALCIFEROL
  12. LANTUS [Concomitant]
     Active Substance: INSULIN GLARGINE
  13. DIOVAN [Concomitant]
     Active Substance: VALSARTAN
  14. ECOTRIN [Concomitant]
     Active Substance: ASPIRIN
  15. LEVOTHYROXINE [Concomitant]
     Active Substance: LEVOTHYROXINE

REACTIONS (1)
  - International normalised ratio increased [Unknown]
